FAERS Safety Report 6686905-X (Version None)
Quarter: 2010Q2

REPORT INFORMATION
  Report Type: 
  Country: None (occurrence: None)
  Receive Date: 20100419
  Receipt Date: 20100319
  Transmission Date: 20101027
  Serious: Yes (Death, Other)
  Sender: FDA-Public Use
  Company Number: US-BAXTER-2010BH001201

PATIENT
  Age: 38 Year
  Sex: Female

DRUGS (4)
  1. HEPARIN SODIUM INJECTION [Suspect]
     Indication: URETERAL STENT INSERTION
     Route: 042
     Dates: start: 20080110, end: 20080112
  2. HEPARIN SODIUM INJECTION [Suspect]
     Route: 041
     Dates: start: 20080110, end: 20080112
  3. XANAX [Concomitant]
     Indication: DRUG USE FOR UNKNOWN INDICATION
     Route: 065
  4. IBUPROFEN [Concomitant]
     Indication: DRUG USE FOR UNKNOWN INDICATION
     Route: 065

REACTIONS (7)
  - ARTERIAL THROMBOSIS [None]
  - DISSEMINATED INTRAVASCULAR COAGULATION [None]
  - HAEMODYNAMIC INSTABILITY [None]
  - HYPOAESTHESIA [None]
  - MULTI-ORGAN FAILURE [None]
  - PERIPHERAL COLDNESS [None]
  - THROMBOSIS [None]
